FAERS Safety Report 8283395-0 (Version None)
Quarter: 2012Q2

REPORT INFORMATION
  Report Type: 
  Country: None (occurrence: None)
  Receive Date: 20120413
  Receipt Date: 20120402
  Transmission Date: 20120825
  Serious: Yes (Other)
  Sender: FDA-Public Use
  Company Number: US-MPIJNJ-2012-02352

PATIENT
  Sex: Male
  Weight: 92.971 kg

DRUGS (3)
  1. VELCADE [Suspect]
     Indication: MULTIPLE MYELOMA
     Dosage: 2.6 MG/M2, 2/WEEK
     Route: 042
     Dates: start: 20111206
  2. DEXAMETHASONE [Suspect]
     Indication: MULTIPLE MYELOMA
     Dosage: 40 MG, CYCLIC
     Dates: start: 20111206
  3. CYCLOPHOSPHAMIDE [Suspect]
     Indication: MULTIPLE MYELOMA
     Dosage: 600 MG, 1/WEEK
     Dates: start: 20111206

REACTIONS (6)
  - BLOOD GLUCOSE INCREASED [None]
  - HEPATIC ENZYME INCREASED [None]
  - INSOMNIA [None]
  - SENSITIVITY OF TEETH [None]
  - PHOTOSENSITIVITY REACTION [None]
  - DRUG PRESCRIBING ERROR [None]
